FAERS Safety Report 25887382 (Version 3)
Quarter: 2025Q4

REPORT INFORMATION
  Report Type: Spontaneous
  Country: US (occurrence: US)
  Receive Date: 20251006
  Receipt Date: 20251013
  Transmission Date: 20260117
  Serious: No
  Sender: SANDOZ
  Company Number: US-SANDOZ-SDZ2025US071883

PATIENT
  Age: 32 Year
  Sex: Female

DRUGS (4)
  1. AZITHROMYCIN [Suspect]
     Active Substance: AZITHROMYCIN
     Indication: Mycobacterium abscessus infection
     Dosage: UNK
     Route: 065
  2. IMIPENEM [Suspect]
     Active Substance: IMIPENEM
     Indication: Mycobacterium abscessus infection
     Dosage: UNK
     Route: 065
  3. OMADACYCLINE [Suspect]
     Active Substance: OMADACYCLINE
     Indication: Mycobacterium abscessus infection
     Dosage: LOWER DOSE 150 MG PO DAILY IN SEPTEMBER
     Route: 048
  4. TEDIZOLID [Suspect]
     Active Substance: TEDIZOLID
     Indication: Mycobacterium abscessus infection
     Dosage: UNK
     Route: 065

REACTIONS (3)
  - AST/ALT ratio abnormal [Unknown]
  - Tattoo associated skin reaction [Unknown]
  - Headache [Unknown]
